FAERS Safety Report 8159591-X (Version None)
Quarter: 2012Q1

REPORT INFORMATION
  Report Type: 
  Country: None (occurrence: None)
  Receive Date: 20120223
  Receipt Date: 20120209
  Transmission Date: 20120608
  Serious: Yes (Hospitalization)
  Sender: FDA-Public Use
  Company Number: GB-ROCHE-1041219

PATIENT
  Sex: Male
  Weight: 118 kg

DRUGS (2)
  1. RANIBIZUMAB [Suspect]
     Indication: MACULAR OEDEMA
     Route: 050
     Dates: start: 20110316, end: 20110316
  2. RANIBIZUMAB [Suspect]
     Indication: VISUAL IMPAIRMENT
     Dosage: LAST DOSE PRIOR TO SAE: 12/JAN/2012
     Dates: start: 20120112, end: 20120112

REACTIONS (1)
  - NEPHROTIC SYNDROME [None]
